FAERS Safety Report 11401622 (Version 1)
Quarter: 2015Q3

REPORT INFORMATION
  Report Type: Spontaneous
  Country: GB (occurrence: GB)
  Receive Date: 20150821
  Receipt Date: 20150821
  Transmission Date: 20151125
  Serious: Yes (Other)
  Sender: FDA-Public Use
  Company Number: GB-AUROBINDO-AUR-APL-2015-07182

PATIENT
  Age: 75 Year
  Sex: Female

DRUGS (2)
  1. SERTRALINE [Interacting]
     Active Substance: SERTRALINE HYDROCHLORIDE
     Indication: PRODUCT USED FOR UNKNOWN INDICATION
     Dosage: 25 MG, UNK
     Route: 065
     Dates: start: 20150509
  2. WARFARIN [Suspect]
     Active Substance: WARFARIN
     Indication: PULMONARY EMBOLISM
     Route: 065
     Dates: start: 20150508

REACTIONS (6)
  - Haemothorax [Unknown]
  - International normalised ratio increased [Unknown]
  - Drug interaction [Unknown]
  - Pleural effusion [Unknown]
  - Pneumothorax [Unknown]
  - Confusional state [Unknown]

NARRATIVE: CASE EVENT DATE: 20150510
